FAERS Safety Report 7728188-5 (Version None)
Quarter: 2011Q3

REPORT INFORMATION
  Report Type: 
  Country: None (occurrence: None)
  Receive Date: 20110905
  Receipt Date: 20110822
  Transmission Date: 20111222
  Serious: Yes (Other)
  Sender: FDA-Public Use
  Company Number: PHHY2011FR75486

PATIENT
  Age: 69 Year
  Sex: Male

DRUGS (3)
  1. EXFORGE [Concomitant]
     Dates: end: 20110627
  2. RASILEZ [Suspect]
     Indication: HYPERTENSION
     Dosage: 300 MG, QD
     Route: 048
     Dates: start: 20110627, end: 20110714
  3. EXFORGE [Concomitant]
     Dates: start: 20110714

REACTIONS (5)
  - PRURITUS [None]
  - CHOLELITHIASIS [None]
  - ARTHRALGIA [None]
  - DIARRHOEA [None]
  - JAUNDICE [None]
